APPROVED DRUG PRODUCT: IOPAMIDOL-370
Active Ingredient: IOPAMIDOL
Strength: 76%
Dosage Form/Route: INJECTABLE;INJECTION
Application: A074881 | Product #004
Applicant: COOK IMAGING CORP
Approved: Jul 28, 2000 | RLD: No | RS: No | Type: DISCN